FAERS Safety Report 22070597 (Version 2)
Quarter: 2023Q1

REPORT INFORMATION
  Report Type: Spontaneous
  Country: US (occurrence: US)
  Receive Date: 20230307
  Receipt Date: 20230331
  Transmission Date: 20230418
  Serious: No
  Sender: FDA-Public Use
  Company Number: US-PFIZER INC-202300093414

PATIENT
  Age: 68 Year
  Sex: Female
  Weight: 50.794 kg

DRUGS (7)
  1. PAXLOVID [Suspect]
     Active Substance: NIRMATRELVIR\RITONAVIR
     Indication: COVID-19 treatment
     Dosage: 2 NIRMATRELVIR, 1RITONAVIR, 2X/DAY
     Dates: start: 20230219, end: 20230223
  2. FAMOTIDINE [Concomitant]
     Active Substance: FAMOTIDINE
     Dosage: UNK
     Dates: start: 20221208
  3. ONE A DAY WOMEN^S 50+ COMPLETE MULTIVITAMIN [Concomitant]
     Dosage: UNK
  4. MELATONIN [Concomitant]
     Active Substance: MELATONIN
     Dosage: UNK
     Dates: start: 2018
  5. CRANBERRY [Concomitant]
     Active Substance: CRANBERRY
     Dosage: UNK
     Dates: start: 2010
  6. CALCIUM [Concomitant]
     Active Substance: CALCIUM
     Dosage: UNK
     Dates: start: 2020
  7. XIIDRA [Concomitant]
     Active Substance: LIFITEGRAST
     Dosage: UNK
     Dates: start: 2022

REACTIONS (2)
  - COVID-19 [Recovering/Resolving]
  - Disease recurrence [Recovering/Resolving]

NARRATIVE: CASE EVENT DATE: 20230228
